FAERS Safety Report 6480399-5 (Version None)
Quarter: 2009Q4

REPORT INFORMATION
  Report Type: 
  Country: None (occurrence: None)
  Receive Date: 20091202
  Receipt Date: 20091118
  Transmission Date: 20100525
  Serious: Yes (Hospitalization)
  Sender: FDA-Public Use
  Company Number: 233283J09USA

PATIENT
  Age: 47 Year
  Sex: Female
  Weight: 61 kg

DRUGS (9)
  1. REBIF [Suspect]
     Indication: MULTIPLE SCLEROSIS
     Dosage: 22 MCG, 3 IN 1 WEEKS, SUBCUTANEOUS
     Route: 058
     Dates: start: 20090501, end: 20090601
  2. REBIF [Suspect]
     Indication: MULTIPLE SCLEROSIS
     Dosage: 22 MCG, 3 IN 1 WEEKS, SUBCUTANEOUS
     Route: 058
     Dates: start: 20090721, end: 20091121
  3. ZOCOR [Concomitant]
  4. SYNTHROID [Concomitant]
  5. CYMBALTA [Concomitant]
  6. PROVIGIL [Concomitant]
  7. ZANAFLEX [Concomitant]
  8. OXYCONTIN [Concomitant]
  9. TYLENOL [Concomitant]

REACTIONS (4)
  - CANDIDIASIS [None]
  - CONDITION AGGRAVATED [None]
  - IMPAIRED GASTRIC EMPTYING [None]
  - MULTIPLE SCLEROSIS [None]
